FAERS Safety Report 7061302-6 (Version None)
Quarter: 2010Q4

REPORT INFORMATION
  Report Type: 
  Country: None (occurrence: None)
  Receive Date: 20101026
  Receipt Date: 20101022
  Transmission Date: 20110411
  Serious: No
  Sender: FDA-Public Use
  Company Number: US-PFIZER INC-2010134812

PATIENT
  Sex: Male
  Weight: 97.506 kg

DRUGS (5)
  1. CELEBREX [Suspect]
     Indication: OSTEOPOROSIS
     Dosage: UNK
     Dates: start: 20100401, end: 20101001
  2. CELEBREX [Suspect]
     Indication: ARTHRITIS
  3. CELEBREX [Suspect]
     Indication: ARTHROPATHY
  4. ACETYLSALICYLIC ACID [Concomitant]
     Indication: CARDIOVASCULAR DISORDER
     Dosage: 81 MG, 1X/DAY
     Route: 048
  5. PLAVIX [Concomitant]
     Indication: PERIPHERAL ARTERIAL OCCLUSIVE DISEASE
     Dosage: 80 MG, 1X/DAY
     Route: 048
     Dates: start: 20090101

REACTIONS (1)
  - PAIN [None]
